FAERS Safety Report 5430325-2 (Version None)
Quarter: 2007Q3

REPORT INFORMATION
  Report Type: 
  Country: None (occurrence: None)
  Receive Date: 20070830
  Receipt Date: 20070824
  Transmission Date: 20080115
  Serious: Yes (Other)
  Sender: FDA-Public Use
  Company Number: PHRM2007FR01336

PATIENT
  Age: 52 Year
  Sex: Female

DRUGS (2)
  1. GLEEVEC [Suspect]
     Indication: CHRONIC MYELOID LEUKAEMIA
     Dosage: 600 MG PER DAY
     Route: 048
     Dates: start: 20040601
  2. AZATHIOPRINE SODIUM [Suspect]
     Indication: AUTOIMMUNE HEPATITIS
     Dosage: 2 DF DAILY
     Route: 048
     Dates: start: 20050807

REACTIONS (4)
  - AUTOIMMUNE HEPATITIS [None]
  - DRUG INEFFECTIVE [None]
  - DRUG INTERACTION [None]
  - DRUG LEVEL BELOW THERAPEUTIC [None]
